FAERS Safety Report 7387487-X (Version None)
Quarter: 2011Q1

REPORT INFORMATION
  Report Type: 
  Country: None (occurrence: None)
  Receive Date: 20110331
  Receipt Date: 20110329
  Transmission Date: 20110831
  Serious: Yes (Other)
  Sender: FDA-Public Use
  Company Number: AU-PFIZER INC-2011070027

PATIENT
  Age: 46 Year
  Sex: Male

DRUGS (1)
  1. CHAMPIX [Suspect]
     Dosage: UNK

REACTIONS (7)
  - INFLAMMATION [None]
  - STOMATITIS [None]
  - INFECTION [None]
  - BLISTER [None]
  - ORAL CANDIDIASIS [None]
  - DERMATITIS [None]
  - ANAL INFLAMMATION [None]
